FAERS Safety Report 22177742 (Version 1)
Quarter: 2023Q2

REPORT INFORMATION
  Report Type: Spontaneous
  Country: US (occurrence: US)
  Receive Date: 20230405
  Receipt Date: 20230405
  Transmission Date: 20230721
  Serious: No
  Sender: FDA-Public Use
  Company Number: US-ABBVIE-4343690

PATIENT
  Age: 38 Year
  Sex: Female

DRUGS (1)
  1. HUMIRA [Suspect]
     Active Substance: ADALIMUMAB
     Indication: Inflammation
     Route: 058

REACTIONS (8)
  - Wrong technique in product usage process [Unknown]
  - Unevaluable event [Unknown]
  - Abdominal pain [Unknown]
  - Unevaluable event [Unknown]
  - Haematochezia [Unknown]
  - Device issue [Unknown]
  - Incorrect dose administered [Unknown]
  - General symptom [Unknown]

NARRATIVE: CASE EVENT DATE: 20230310
